FAERS Safety Report 6848435-1 (Version None)
Quarter: 2010Q3

REPORT INFORMATION
  Report Type: 
  Country: None (occurrence: None)
  Receive Date: 20100716
  Receipt Date: 20100713
  Transmission Date: 20110219
  Serious: Yes (Hospitalization, Disabling, Other)
  Sender: FDA-Public Use
  Company Number: IE-MERCK-1001GBR00011

PATIENT
  Age: 68 Year
  Sex: Male
  Weight: 70 kg

DRUGS (2)
  1. ISENTRESS [Suspect]
     Indication: HIV INFECTION
     Route: 048
     Dates: start: 20090101
  2. LOPINAVIR AND RITONAVIR [Concomitant]
     Route: 065
     Dates: start: 20090101

REACTIONS (2)
  - MYOPATHY [None]
  - OEDEMA PERIPHERAL [None]
